FAERS Safety Report 22089126 (Version 1)
Quarter: 2023Q1

REPORT INFORMATION
  Report Type: Report from Study
  Country: US (occurrence: US)
  Receive Date: 20230313
  Receipt Date: 20230313
  Transmission Date: 20230418
  Serious: Yes (Other)
  Sender: FDA-Public Use
  Company Number: US-ABBVIE-4336803

PATIENT
  Sex: Female

DRUGS (2)
  1. RINVOQ [Suspect]
     Active Substance: UPADACITINIB
     Indication: Colitis ulcerative
     Dosage: FORM STRENGTH: 30 MILLIGRAM
     Route: 048
     Dates: start: 202212
  2. RINVOQ [Suspect]
     Active Substance: UPADACITINIB
     Indication: Colitis ulcerative
     Dosage: LOADING DOSE : ONCE DAILY INITIAL 4 WEEKS
     Route: 048
     Dates: start: 20230207

REACTIONS (9)
  - Breast cancer female [Unknown]
  - Haematochezia [Unknown]
  - Gastrointestinal infection [Unknown]
  - Abdominal pain [Unknown]
  - Arthralgia [Unknown]
  - Decreased appetite [Unknown]
  - Therapeutic product effect decreased [Unknown]
  - Intestinal dilatation [Unknown]
  - Scar [Unknown]

NARRATIVE: CASE EVENT DATE: 20230101
